FAERS Safety Report 13111837 (Version 2)
Quarter: 2017Q3

REPORT INFORMATION
  Report Type: Spontaneous
  Country: US (occurrence: US)
  Receive Date: 20170113
  Receipt Date: 20170731
  Transmission Date: 20171127
  Serious: No
  Sender: FDA-Public Use
  Company Number: US-B.I. PHARMACEUTICALS,INC./RIDGEFIELD-2017-BI-001387

PATIENT
  Age: 42 Year
  Sex: Male

DRUGS (3)
  1. GLYXAMBI [Suspect]
     Active Substance: EMPAGLIFLOZIN\LINAGLIPTIN
     Indication: TYPE 2 DIABETES MELLITUS
     Dosage: FORM STRENGTH: 25 MG/ 5 MG; ? ADMINISTRATION CORRECT? YES
     Route: 048
     Dates: end: 20170109
  2. GLUCOVANCE [Concomitant]
     Active Substance: GLYBURIDE\METFORMIN HYDROCHLORIDE
     Indication: TYPE 2 DIABETES MELLITUS
     Dosage: 2 TABLETS TWICE DAILY;  FORM STRENGTH: 5 MG/500 MG;
     Route: 048
  3. TRESIBA INSULIN [Concomitant]
     Indication: PRODUCT USED FOR UNKNOWN INDICATION
     Dosage: 15 UNITS DAILY;  FORM STRENGTH: 15 UNITS; FORMULATION: SUBCUTANEOUS
     Route: 058

REACTIONS (1)
  - Anion gap increased [Not Recovered/Not Resolved]

NARRATIVE: CASE EVENT DATE: 20170109
